FAERS Safety Report 17433988 (Version 1)
Quarter: 2020Q1

REPORT INFORMATION
  Report Type: Spontaneous
  Country: US (occurrence: US)
  Receive Date: 20200203
  Receipt Date: 20200203
  Transmission Date: 20200409
  Serious: Yes (Hospitalization)
  Sender: FDA-Public Use
  Company Number: None

PATIENT
  Age: 74 Year
  Sex: Male

DRUGS (12)
  1. BACLOFEN. [Concomitant]
     Active Substance: BACLOFEN
  2. NYSTATIN. [Concomitant]
     Active Substance: NYSTATIN
  3. ZYTIGA [Suspect]
     Active Substance: ABIRATERONE ACETATE
     Route: 048
     Dates: start: 20180524
  4. LEVOTHYROXIN [Concomitant]
     Active Substance: LEVOTHYROXINE
  5. LIDOCAINE LACTULOSE SOL [Concomitant]
  6. MONTELUKAST [Concomitant]
     Active Substance: MONTELUKAST SODIUM
  7. TAMSULOSIN [Concomitant]
     Active Substance: TAMSULOSIN
  8. TAMSULOSIN [Concomitant]
     Active Substance: TAMSULOSIN
  9. LACTULOSE. [Concomitant]
     Active Substance: LACTULOSE
  10. PREDNISONE. [Concomitant]
     Active Substance: PREDNISONE
  11. PREDNISONE. [Concomitant]
     Active Substance: PREDNISONE
  12. NO DRUG NAME [Concomitant]

REACTIONS (1)
  - Pseudomonas infection [None]
